FAERS Safety Report 8134826-8 (Version None)
Quarter: 2012Q1

REPORT INFORMATION
  Report Type: 
  Country: None (occurrence: None)
  Receive Date: 20120214
  Receipt Date: 20120210
  Transmission Date: 20120608
  Serious: Yes (Other)
  Sender: FDA-Public Use
  Company Number: DE-SANOFI-AVENTIS-2012SA009118

PATIENT
  Age: 76 Year
  Sex: Female

DRUGS (5)
  1. ACETYLSALICYLIC ACID SRT [Concomitant]
     Indication: AORTIC VALVE REPLACEMENT
     Dosage: DAILY DOSE: 200 MG MILLGRAM(S) EVERY DAYS
     Route: 048
  2. BISOPROLOL FUMARATE [Concomitant]
     Indication: AORTIC VALVE REPLACEMENT
     Dosage: DAILY DOSE: 2.5 MG MILLGRAM(S) EVERY DAYS
     Route: 048
     Dates: start: 20110601
  3. MULTAQ [Suspect]
     Indication: ATRIAL FIBRILLATION
     Dosage: DAILY DOSE: 800 MG MILLGRAM(S) EVERY DAYS
     Route: 048
     Dates: start: 20110601, end: 20110823
  4. PREDNISOLONE [Concomitant]
     Dosage: DAILY DOSE: 7.5 MG MILLGRAM(S) EVERY DAYS
     Route: 048
     Dates: start: 20110201
  5. TORSEMIDE [Concomitant]
     Indication: OEDEMA
     Dosage: DAILY DOSE: 20 MG MILLGRAM(S) EVERY DAYS
     Route: 048

REACTIONS (6)
  - TRANSAMINASES INCREASED [None]
  - BLOOD ALKALINE PHOSPHATASE INCREASED [None]
  - GAMMA-GLUTAMYLTRANSFERASE INCREASED [None]
  - ASPARTATE AMINOTRANSFERASE INCREASED [None]
  - CHOLESTASIS [None]
  - ALANINE AMINOTRANSFERASE INCREASED [None]
